FAERS Safety Report 4488276-6 (Version None)
Quarter: 2004Q4

REPORT INFORMATION
  Report Type: 
  Country: None (occurrence: None)
  Receive Date: 20041026
  Receipt Date: 20041007
  Transmission Date: 20050328
  Serious: Yes (Other)
  Sender: FDA-Public Use
  Company Number: USA041080598

PATIENT
  Age: 83 Year
  Sex: Female

DRUGS (10)
  1. FORTEO [Suspect]
     Indication: OSTEOPOROSIS
     Dates: start: 20030210
  2. CALCIUM WITH VITAMIN D [Concomitant]
  3. SYNTHROID [Concomitant]
  4. LIPITOR [Concomitant]
  5. METOPROLOL SUCCINATE [Concomitant]
  6. RELAFEN [Concomitant]
  7. PRILOSEC (OMEPRAZOLE RATIOPHARM) [Concomitant]
  8. VERAPAMIL [Concomitant]
  9. CARDURA [Concomitant]
  10. PAXIL [Concomitant]

REACTIONS (1)
  - BREAST CANCER FEMALE [None]
